FAERS Safety Report 4546533-9 (Version None)
Quarter: 2004Q4

REPORT INFORMATION
  Report Type: 
  Country: None (occurrence: None)
  Receive Date: 20041223
  Receipt Date: 20040824
  Transmission Date: 20050328
  Serious: No
  Sender: FDA-Public Use
  Company Number: US-JNJFOC-20040808603

PATIENT
  Age: 23 Year
  Sex: Female
  Weight: 58.9676 kg

DRUGS (1)
  1. ORTHO EVRA [Suspect]
     Indication: CONTRACEPTION
     Dosage: 1 DOSE(S), 3 IN 4 WEEK, TRANSDERMAL
     Route: 062
     Dates: end: 20030901

REACTIONS (6)
  - HEADACHE [None]
  - HYPERHIDROSIS [None]
  - IRRITABILITY [None]
  - MENSTRUATION IRREGULAR [None]
  - PAIN IN EXTREMITY [None]
  - WEIGHT DECREASED [None]
